FAERS Safety Report 23699792 (Version 1)
Quarter: 2024Q2

REPORT INFORMATION
  Report Type: Spontaneous
  Country: JP (occurrence: JP)
  Receive Date: 20240403
  Receipt Date: 20240403
  Transmission Date: 20240715
  Serious: Yes (Hospitalization)
  Sender: FDA-Public Use
  Company Number: JP-CHEPLA-2024003957

PATIENT
  Age: 31 Year
  Sex: Male

DRUGS (1)
  1. GANCICLOVIR [Suspect]
     Active Substance: GANCICLOVIR
     Indication: Cystitis viral
     Dosage: DAILY DOSE: 600 MILLIGRAM
     Route: 042

REACTIONS (3)
  - Graft complication [Unknown]
  - Haematuria [Unknown]
  - Off label use [Unknown]
